FAERS Safety Report 8068993-1 (Version None)
Quarter: 2011Q4

REPORT INFORMATION
  Report Type: 
  Country: None (occurrence: None)
  Receive Date: 20111221
  Receipt Date: 20101223
  Transmission Date: 20120403
  Serious: Yes (Other)
  Sender: FDA-Public Use
  Company Number: PHHY2010US78092

PATIENT
  Age: 74 Year
  Sex: Male

DRUGS (1)
  1. EXJADE [Suspect]
     Indication: SICKLE CELL ANAEMIA
     Dosage: 1500 MG, ORAL
     Route: 048

REACTIONS (3)
  - INCREASED APPETITE [None]
  - HEPATIC ENZYME ABNORMAL [None]
  - WEIGHT INCREASED [None]
